FAERS Safety Report 11202679 (Version 4)
Quarter: 2018Q2

REPORT INFORMATION
  Report Type: Spontaneous
  Country: US (occurrence: US)
  Receive Date: 20150619
  Receipt Date: 20180416
  Transmission Date: 20180711
  Serious: Yes (Death, Hospitalization, Other)
  Sender: FDA-Public Use
  Company Number: US-PFIZER INC-2015204620

PATIENT
  Age: 52 Year
  Sex: Male
  Weight: 104.3 kg

DRUGS (2)
  1. LYRICA [Suspect]
     Active Substance: PREGABALIN
     Indication: DIABETIC NEPHROPATHY
     Dosage: 300 MG, 2X/DAY
     Route: 048
     Dates: start: 2013, end: 20150605
  2. LYRICA [Suspect]
     Active Substance: PREGABALIN
     Indication: NEUROPATHY PERIPHERAL
     Dosage: 300 MG, 2X/DAY
     Route: 048
     Dates: end: 20180325

REACTIONS (9)
  - Mouth haemorrhage [Unknown]
  - Nausea [Unknown]
  - Gastric ulcer [Recovering/Resolving]
  - Overdose [Unknown]
  - Thrombosis [Unknown]
  - Pain [Unknown]
  - Death [Fatal]
  - Oesophageal rupture [Recovering/Resolving]
  - Myocardial infarction [Unknown]

NARRATIVE: CASE EVENT DATE: 2013
